FAERS Safety Report 21865202 (Version 1)
Quarter: 2023Q1

REPORT INFORMATION
  Report Type: Report from Study
  Country: US (occurrence: US)
  Receive Date: 20230116
  Receipt Date: 20230116
  Transmission Date: 20230418
  Serious: No
  Sender: FDA-Public Use
  Company Number: US-ABBVIE-4237600

PATIENT
  Sex: Female

DRUGS (1)
  1. HUMIRA [Suspect]
     Active Substance: ADALIMUMAB
     Indication: Psoriatic arthropathy
     Dosage: CITRATE FREE
     Route: 058

REACTIONS (4)
  - Ingrowing nail [Not Recovered/Not Resolved]
  - Foot fracture [Not Recovered/Not Resolved]
  - Oral candidiasis [Recovering/Resolving]
  - Oesophageal candidiasis [Recovering/Resolving]
